FAERS Safety Report 9690232 (Version 1)
Quarter: 2013Q4

REPORT INFORMATION
  Report Type: Report from Study
  Country: CA (occurrence: CA)
  Receive Date: 20131115
  Receipt Date: 20131115
  Transmission Date: 20140711
  Serious: Yes (Hospitalization)
  Sender: FDA-Public Use
  Company Number: CA-JNJFOC-20131107820

PATIENT
  Age: 50 Year
  Sex: Male

DRUGS (1)
  1. REMICADE [Suspect]
     Indication: COLITIS ULCERATIVE
     Route: 042

REACTIONS (6)
  - Colectomy [Unknown]
  - Ileostomy [Unknown]
  - Procedural complication [Unknown]
  - Post procedural haemorrhage [Unknown]
  - Nausea [Unknown]
  - Bedridden [Unknown]
